FAERS Safety Report 5803445-8 (Version None)
Quarter: 2008Q2

REPORT INFORMATION
  Report Type: 
  Country: None (occurrence: None)
  Receive Date: 20080627
  Receipt Date: 20080327
  Transmission Date: 20081010
  Serious: Yes (Other)
  Sender: FDA-Public Use
  Company Number: 46722

PATIENT
  Age: 17 Year
  Sex: Male
  Weight: 70 kg

DRUGS (9)
  1. VECURONIUM BROMIDE [Suspect]
     Indication: SEDATION
     Dosage: CONTINOUS IV INFUSION
     Route: 042
     Dates: start: 20080312
  2. VECURONIUM BROMIDE [Suspect]
     Indication: SEPSIS
     Dosage: CONTINOUS IV INFUSION
     Route: 042
     Dates: start: 20080312
  3. FENTANYL-25 [Concomitant]
  4. METHYLPREDNISOLONE 16MG TAB [Concomitant]
  5. CEFTAZIDINE [Concomitant]
  6. XYCYCLINE [Concomitant]
  7. TPN [Concomitant]
  8. CYCLOSPORINE [Concomitant]
  9. AACYCLOVIR [Concomitant]

REACTIONS (1)
  - DRUG INEFFECTIVE [None]
